FAERS Safety Report 6638874-6 (Version None)
Quarter: 2010Q1

REPORT INFORMATION
  Report Type: 
  Country: None (occurrence: None)
  Receive Date: 20100317
  Receipt Date: 20100308
  Transmission Date: 20100710
  Serious: Yes (Other)
  Sender: FDA-Public Use
  Company Number: GXKR2010BE02831

PATIENT
  Age: 47 Year
  Sex: Female

DRUGS (3)
  1. DICLOFENAC SANDOZ (NGX) [Suspect]
     Indication: TENSION
     Dosage: 50 MG, TID
     Route: 048
     Dates: start: 20100223, end: 20100226
  2. BUDESONIDE W/FORMOTEROL FUMARATE [Concomitant]
  3. SINGULAIR [Concomitant]

REACTIONS (2)
  - EYELID OEDEMA [None]
  - ORAL HERPES [None]
